FAERS Safety Report 5209889-X (Version None)
Quarter: 2006Q4

REPORT INFORMATION
  Report Type: 
  Country: None (occurrence: None)
  Receive Date: 20061128
  Receipt Date: 20061016
  Transmission Date: 20070319
  Serious: Yes (Hospitalization)
  Sender: FDA-Public Use
  Company Number: S06-USA-04307-01

PATIENT
  Age: 22 Year
  Sex: Male

DRUGS (3)
  1. CAMPRAL [Suspect]
     Indication: ALCOHOLISM
     Dosage: 666 MG TID; PO
     Route: 048
  2. ANTIPSYCHOTIC MEDICATION (NOS) [Concomitant]
  3. MOOD STABILIZER MEDICATION (NOS) [Concomitant]

REACTIONS (1)
  - RENAL FAILURE [None]
